FAERS Safety Report 6454398-3 (Version None)
Quarter: 2009Q4

REPORT INFORMATION
  Report Type: 
  Country: None (occurrence: None)
  Receive Date: 20091124
  Receipt Date: 20091117
  Transmission Date: 20100525
  Serious: Yes (Hospitalization, Other)
  Sender: FDA-Public Use
  Company Number: FR-WYE-H12285009

PATIENT
  Age: 87 Year
  Sex: Female

DRUGS (5)
  1. CORDARONE [Suspect]
     Indication: DRUG USE FOR UNKNOWN INDICATION
     Route: 048
     Dates: end: 20090223
  2. HEMIGOXINE NATIVELLE [Concomitant]
     Dosage: DOSE UNKNOWN
     Route: 065
     Dates: start: 20090228
  3. BACTRIM DS [Concomitant]
     Dosage: DOSE UNKNOWN
     Route: 065
     Dates: start: 20090303, end: 20090313
  4. PREVISCAN [Concomitant]
     Dosage: DOSE UNKNOWN
     Route: 065
  5. TAVANIC [Concomitant]
     Dosage: DOSE UNKNOWN
     Route: 065
     Dates: start: 20090225, end: 20090303

REACTIONS (3)
  - HYPERTHYROIDISM [None]
  - LUNG DISORDER [None]
  - STENOTROPHOMONAS INFECTION [None]
